FAERS Safety Report 5563764-X (Version None)
Quarter: 2007Q4

REPORT INFORMATION
  Report Type: 
  Country: None (occurrence: None)
  Receive Date: 20071217
  Receipt Date: 20070821
  Transmission Date: 20080405
  Serious: No
  Sender: FDA-Public Use
  Company Number: US-ASTRAZENECA-2007UW20123

PATIENT
  Age: 76 Year
  Sex: Male
  Weight: 61.7 kg

DRUGS (3)
  1. CRESTOR [Suspect]
     Route: 048
  2. COUMADIN [Concomitant]
     Dosage: FOUR DAYS A WEEK
  3. COUMADIN [Concomitant]

REACTIONS (1)
  - INTERNATIONAL NORMALISED RATIO [None]
